FAERS Safety Report 6972865-0 (Version None)
Quarter: 2010Q3

REPORT INFORMATION
  Report Type: 
  Country: None (occurrence: None)
  Receive Date: 20100909
  Receipt Date: 20100907
  Transmission Date: 20110219
  Serious: Yes (Death, Hospitalization, Other)
  Sender: FDA-Public Use
  Company Number: PHHY2010JP51484

PATIENT
  Age: 81 Year
  Sex: Female

DRUGS (1)
  1. GLEEVEC [Suspect]
     Indication: CHRONIC MYELOID LEUKAEMIA
     Dosage: UNK
     Route: 048

REACTIONS (12)
  - ABDOMINAL PAIN LOWER [None]
  - ABSCESS [None]
  - ASCITES [None]
  - COLONIC FISTULA [None]
  - DISSEMINATED INTRAVASCULAR COAGULATION [None]
  - GASTROINTESTINAL PERFORATION [None]
  - HAEMORRHAGE [None]
  - HEPATIC FUNCTION ABNORMAL [None]
  - LARGE INTESTINE PERFORATION [None]
  - PERITONITIS [None]
  - SEPSIS [None]
  - SURGERY [None]
